FAERS Safety Report 17977147 (Version 1)
Quarter: 2020Q3

REPORT INFORMATION
  Report Type: Spontaneous
  Country: US (occurrence: US)
  Receive Date: 20200703
  Receipt Date: 20200703
  Transmission Date: 20201103
  Serious: Yes (Other)
  Sender: FDA-Public Use
  Company Number: US-DRREDDYS-USA/USA/20/0124582

PATIENT
  Age: 71 Year
  Sex: Male

DRUGS (1)
  1. DECITABINE. [Suspect]
     Active Substance: DECITABINE
     Indication: ACUTE MYELOID LEUKAEMIA
     Route: 065

REACTIONS (3)
  - Acute myeloid leukaemia refractory [Unknown]
  - Leiomyosarcoma [Unknown]
  - Disease progression [Unknown]
